FAERS Safety Report 8262451-7 (Version None)
Quarter: 2012Q2

REPORT INFORMATION
  Report Type: 
  Country: None (occurrence: None)
  Receive Date: 20120405
  Receipt Date: 20120329
  Transmission Date: 20120825
  Serious: Yes (Hospitalization)
  Sender: FDA-Public Use
  Company Number: US-ASTRAZENECA-2011SE73377

PATIENT
  Age: 77 Year
  Sex: Female

DRUGS (2)
  1. NEXIUM [Suspect]
     Route: 048
     Dates: start: 20100601, end: 20110601
  2. SYMBICORT [Suspect]
     Route: 055

REACTIONS (3)
  - DIARRHOEA [None]
  - DYSPNOEA [None]
  - HEARING IMPAIRED [None]
